FAERS Safety Report 25817187 (Version 1)
Quarter: 2025Q3

REPORT INFORMATION
  Report Type: Spontaneous
  Country: US (occurrence: US)
  Receive Date: 20250918
  Receipt Date: 20250918
  Transmission Date: 20251021
  Serious: Yes (Life-Threatening)
  Sender: MYLAN
  Company Number: US-MYLANLABS-2025M1078990

PATIENT
  Age: 55 Year
  Sex: Female

DRUGS (3)
  1. LEVOTHYROXINE [Suspect]
     Active Substance: LEVOTHYROXINE
     Indication: Hypothyroidism
  2. DOBUTAMINE [Concomitant]
     Active Substance: DOBUTAMINE HYDROCHLORIDE
     Indication: Cardiogenic shock
  3. HEPARIN [Concomitant]
     Active Substance: HEPARIN SODIUM
     Indication: Acute myocardial infarction

REACTIONS (1)
  - Drug ineffective [Unknown]
